FAERS Safety Report 18531777 (Version 2)
Quarter: 2020Q4

REPORT INFORMATION
  Report Type: Other
  Country: US (occurrence: US)
  Receive Date: 20201123
  Receipt Date: 20201209
  Transmission Date: 20210114
  Serious: Yes (Other)
  Sender: FDA-Public Use
  Company Number: US-ROCHE-2714889

PATIENT
  Sex: Female

DRUGS (4)
  1. VENCLEXTA [Suspect]
     Active Substance: VENETOCLAX
     Indication: ABNORMAL LOSS OF WEIGHT
     Route: 048
  2. VENCLEXTA [Suspect]
     Active Substance: VENETOCLAX
     Indication: NON-HODGKIN^S LYMPHOMA
     Dosage: TAKE 6 TABLET(S) BY MOUTH (600MG) BY MOUTH EVERY DAY
     Route: 048
  3. VENCLEXTA [Suspect]
     Active Substance: VENETOCLAX
     Indication: HERPES ZOSTER
     Route: 048
  4. GAZYVA [Suspect]
     Active Substance: OBINUTUZUMAB
     Indication: PRODUCT USED FOR UNKNOWN INDICATION
     Route: 065

REACTIONS (11)
  - Chills [Unknown]
  - Blindness unilateral [Unknown]
  - Conjunctivitis allergic [Unknown]
  - Cataract [Unknown]
  - Malignant neoplasm progression [Unknown]
  - Weight decreased [Unknown]
  - Intentional product use issue [Unknown]
  - Illness [Unknown]
  - Asthenia [Unknown]
  - Off label use [Unknown]
  - Herpes zoster [Unknown]
